FAERS Safety Report 8826797 (Version 1)
Quarter: 2012Q4

REPORT INFORMATION
  Report Type: 
  Country: US (occurrence: US)
  Receive Date: 20121005
  Receipt Date: 20121005
  Transmission Date: 20130627
  Serious: Yes (Other)
  Sender: FDA-Public Use
  Company Number: CHPA2012US020577

PATIENT
  Age: 9 Year
  Sex: Male

DRUGS (1)
  1. DEXTROMETHORPHAN\PHENYLEPHRINE HYDROCHLORIDE [Suspect]
     Indication: NASOPHARYNGITIS
     Dosage: UNK, UNK
     Route: 061

REACTIONS (4)
  - Sinusitis [Unknown]
  - Ear infection [Unknown]
  - Sinus disorder [Unknown]
  - Off label use [Unknown]
